FAERS Safety Report 13290371 (Version 3)
Quarter: 2017Q3

REPORT INFORMATION
  Report Type: Spontaneous
  Country: IT (occurrence: IT)
  Receive Date: 20170303
  Receipt Date: 20170808
  Transmission Date: 20171127
  Serious: Yes (Other)
  Sender: FDA-Public Use
  Company Number: IT-ACCORD-048655

PATIENT
  Age: 39 Year
  Sex: Female
  Weight: 78 kg

DRUGS (4)
  1. FLUOROURACIL. [Suspect]
     Active Substance: FLUOROURACIL
     Indication: RECTOSIGMOID CANCER
     Dosage: ALSO RECEIVED AT 510 MG I.V. BOLUS, PATIENT UNDERWENT FOLFOX + ERBITUX CYCLE 2, 3 AND 4
     Route: 040
     Dates: start: 20161215
  2. LEVOFOLINIC ACID [Concomitant]
     Active Substance: LEVOLEUCOVORIN
     Dosage: PATIENT UNDERWENT FOLFOX + ERBITUX CYCLE 2, 3 AND 4
     Route: 042
     Dates: start: 20161215, end: 20170202
  3. ERBITUX [Suspect]
     Active Substance: CETUXIMAB
     Indication: RECTOSIGMOID CANCER
     Dosage: PATIENT UNDERWENT FOLFOX + ERBITUX CYCLE 2, 3 AND 4
     Route: 042
     Dates: start: 20161215
  4. OXALIPLATIN. [Suspect]
     Active Substance: OXALIPLATIN
     Indication: RECTOSIGMOID CANCER
     Dosage: PATIENT UNDERWENT FOLFOX + ERBITUX CYCLE 2, 3 AND 4
     Route: 042
     Dates: start: 20161215

REACTIONS (5)
  - Skin toxicity [Unknown]
  - Nail injury [Recovering/Resolving]
  - Constipation [Recovering/Resolving]
  - Mucosal inflammation [Unknown]
  - Stomatitis [Recovering/Resolving]

NARRATIVE: CASE EVENT DATE: 20170105
